FAERS Safety Report 12131824 (Version 1)
Quarter: 2016Q1

REPORT INFORMATION
  Report Type: Spontaneous
  Country: US (occurrence: None)
  Receive Date: 20160229
  Receipt Date: 20160229
  Transmission Date: 20160526
  Serious: Yes (Hospitalization)
  Sender: FDA-Public Use
  Company Number: None

PATIENT
  Age: 66 Year
  Sex: Female
  Weight: 57.1 kg

DRUGS (2)
  1. LENALIDOMIDE (CC-5013) [Suspect]
     Active Substance: LENALIDOMIDE
     Dates: end: 20160210
  2. RITUXIMAB (MOAB C2B8 ANTI CD20, CHIMERIC) [Suspect]
     Active Substance: RITUXIMAB
     Dates: end: 20160121

REACTIONS (15)
  - Headache [None]
  - Tachycardia [None]
  - Febrile neutropenia [None]
  - Pyrexia [None]
  - Streptococcus test positive [None]
  - Dysuria [None]
  - Leukopenia [None]
  - Viral test positive [None]
  - Paranasal sinus discomfort [None]
  - Fatigue [None]
  - Enterovirus infection [None]
  - Rhinovirus infection [None]
  - Productive cough [None]
  - Neck pain [None]
  - Lung infiltration [None]

NARRATIVE: CASE EVENT DATE: 20160211
